FAERS Safety Report 5321154-9 (Version None)
Quarter: 2007Q2

REPORT INFORMATION
  Report Type: 
  Country: None (occurrence: None)
  Receive Date: 20070510
  Receipt Date: 20070501
  Transmission Date: 20071010
  Serious: Yes (Death, Other)
  Sender: FDA-Public Use
  Company Number: GB-PFIZER INC-2007018999

PATIENT
  Age: 66 Year
  Sex: Male

DRUGS (10)
  1. PREDNISOLONE [Suspect]
  2. CYCLOPHOSPHAMIDE [Suspect]
  3. RITUXIMAB [Suspect]
  4. VINCRISTINE [Suspect]
  5. ETOPOSIDE [Concomitant]
  6. BLEOMYCIN [Concomitant]
  7. METHOTREXATE [Concomitant]
  8. CISPLATIN [Concomitant]
  9. GEMCITABINE HCL [Concomitant]
  10. CHLORAMBUCIL [Concomitant]

REACTIONS (2)
  - LIVER DISORDER [None]
  - T-CELL LYMPHOMA [None]
